FAERS Safety Report 10037374 (Version 1)
Quarter: 2014Q1

REPORT INFORMATION
  Report Type: Spontaneous
  Country: GB (occurrence: GB)
  Receive Date: 20140326
  Receipt Date: 20140326
  Transmission Date: 20141002
  Serious: Yes (Hospitalization)
  Sender: FDA-Public Use
  Company Number: GB-ACCORD-022605

PATIENT
  Age: 59 Year
  Sex: Male
  Weight: 104.77 kg

DRUGS (6)
  1. MYCOPHENOLIC ACID [Suspect]
     Indication: ALVEOLITIS ALLERGIC
     Route: 048
     Dates: start: 201306
  2. ACETYLCYSTEINE [Concomitant]
  3. PREDNISONE/PREDNISONE ACETATE [Concomitant]
  4. LANSOPRAZOLE [Concomitant]
  5. PAVACOL-D [Concomitant]
  6. MORPHINE [Concomitant]

REACTIONS (3)
  - Lower respiratory tract infection [Unknown]
  - Off label use [Unknown]
  - Pulmonary embolism [Recovered/Resolved with Sequelae]
